FAERS Safety Report 13500982 (Version 1)
Quarter: 2017Q2

REPORT INFORMATION
  Report Type: Spontaneous
  Country: US (occurrence: US)
  Receive Date: 20170501
  Receipt Date: 20170501
  Transmission Date: 20170830
  Serious: No
  Sender: FDA-Public Use
  Company Number: US-ROCHE-1841470

PATIENT
  Sex: Male

DRUGS (2)
  1. ESBRIET [Suspect]
     Active Substance: PIRFENIDONE
     Indication: PULMONARY FIBROSIS
     Route: 048
     Dates: start: 20160720
  2. ESBRIET [Suspect]
     Active Substance: PIRFENIDONE
     Dosage: RESTARTED
     Route: 048

REACTIONS (2)
  - Diarrhoea [Unknown]
  - Dizziness [Recovered/Resolved]
